FAERS Safety Report 8075753-4 (Version None)
Quarter: 2012Q1

REPORT INFORMATION
  Report Type: 
  Country: None (occurrence: None)
  Receive Date: 20120127
  Receipt Date: 20120116
  Transmission Date: 20120608
  Serious: Yes (Other)
  Sender: FDA-Public Use
  Company Number: US-JNJFOC-20120108642

PATIENT
  Sex: Female

DRUGS (1)
  1. EXTRA STRENGTH TYLENOL PM CAPLETS [Suspect]
     Indication: PRODUCT USED FOR UNKNOWN INDICATION
     Dosage: TOOK ^MANY^
     Route: 065

REACTIONS (3)
  - INTENTIONAL OVERDOSE [None]
  - FATIGUE [None]
  - INTENTIONAL SELF-INJURY [None]
